FAERS Safety Report 24937882 (Version 1)
Quarter: 2025Q1

REPORT INFORMATION
  Report Type: Spontaneous
  Country: JP (occurrence: JP)
  Receive Date: 20250206
  Receipt Date: 20250206
  Transmission Date: 20250409
  Serious: Yes (Hospitalization, Other)
  Sender: BRISTOL-MYERS SQUIBB COMPANY
  Company Number: JP-BRISTOL-MYERS SQUIBB COMPANY-2025-015095

PATIENT
  Age: 74 Year
  Sex: Female

DRUGS (5)
  1. TRIAMCINOLONE ACETONIDE [Suspect]
     Active Substance: TRIAMCINOLONE ACETONIDE
     Indication: Polymyalgia rheumatica
     Route: 030
  2. SARILUMAB [Concomitant]
     Active Substance: SARILUMAB
     Indication: Polymyalgia rheumatica
  3. SULFASALAZINE [Concomitant]
     Active Substance: SULFASALAZINE
     Indication: Polymyalgia rheumatica
  4. METHYLPREDNISOLONE [Concomitant]
     Active Substance: METHYLPREDNISOLONE
     Indication: Prophylaxis
  5. TOCILIZUMAB [Concomitant]
     Active Substance: TOCILIZUMAB
     Indication: Prophylaxis
     Route: 058

REACTIONS (3)
  - Giant cell arteritis [Unknown]
  - Visual acuity reduced [Not Recovered/Not Resolved]
  - Blindness [Unknown]
